FAERS Safety Report 5372604-3 (Version None)
Quarter: 2007Q2

REPORT INFORMATION
  Report Type: 
  Country: None (occurrence: None)
  Receive Date: 20070627
  Receipt Date: 20070614
  Transmission Date: 20071010
  Serious: Yes (Other)
  Sender: FDA-Public Use
  Company Number: US-PFIZER INC-2007050147

PATIENT
  Sex: Female

DRUGS (12)
  1. CHANTIX [Suspect]
     Indication: EX-SMOKER
     Dates: start: 20070608, end: 20070614
  2. BENADRYL [Suspect]
  3. ALBUTEROL [Concomitant]
     Route: 055
  4. IPRATROPIUM BROMIDE [Concomitant]
     Route: 055
  5. PREVACID [Concomitant]
  6. LORTAB [Concomitant]
  7. ZANTAC [Concomitant]
  8. CELEXA [Concomitant]
  9. TOPAMAX [Concomitant]
  10. CLONIDINE [Concomitant]
  11. ALLEGRA [Concomitant]
  12. PHENOBARBITAL TAB [Concomitant]

REACTIONS (6)
  - DRUG HYPERSENSITIVITY [None]
  - PALPITATIONS [None]
  - PARAESTHESIA [None]
  - SKIN DISORDER [None]
  - SURGERY [None]
  - WEIGHT INCREASED [None]
